FAERS Safety Report 9193498 (Version 1)
Quarter: 2013Q1

REPORT INFORMATION
  Report Type: Report from Study
  Country: JP (occurrence: JP)
  Receive Date: 20130327
  Receipt Date: 20130327
  Transmission Date: 20140127
  Serious: Yes (Other)
  Sender: FDA-Public Use
  Company Number: JP-ROCHE-1206809

PATIENT
  Sex: 0

DRUGS (2)
  1. TOCILIZUMAB [Suspect]
     Indication: AMYLOIDOSIS
     Route: 065
  2. TOCILIZUMAB [Suspect]
     Indication: RHEUMATIC DISORDER

REACTIONS (1)
  - Panniculitis [Unknown]
